FAERS Safety Report 5206522-8 (Version None)
Quarter: 2006Q4

REPORT INFORMATION
  Report Type: 
  Country: None (occurrence: None)
  Receive Date: 20061026
  Receipt Date: 20060828
  Transmission Date: 20070319
  Serious: No
  Sender: FDA-Public Use
  Company Number: 2006105333

PATIENT
  Sex: Male

DRUGS (1)
  1. LYRICA [Suspect]
     Indication: DIABETIC NEUROPATHY
     Dosage: (2 D)
     Dates: start: 20050101

REACTIONS (4)
  - DRY MOUTH [None]
  - OEDEMA PERIPHERAL [None]
  - SKIN LESION [None]
  - WEIGHT INCREASED [None]
